FAERS Safety Report 17831119 (Version 3)
Quarter: 2020Q3

REPORT INFORMATION
  Report Type: Spontaneous
  Country: US (occurrence: US)
  Receive Date: 20200527
  Receipt Date: 20200826
  Transmission Date: 20201103
  Serious: No
  Sender: FDA-Public Use
  Company Number: US-STRONGBRIDGE BIOPHARMA-2020-STR-000127

PATIENT
  Sex: Female

DRUGS (2)
  1. KEVEYIS [Suspect]
     Active Substance: DICHLORPHENAMIDE
     Indication: FAMILIAL PERIODIC PARALYSIS
     Dosage: 50 MG, QD
     Route: 048
     Dates: start: 2020
  2. KEVEYIS [Suspect]
     Active Substance: DICHLORPHENAMIDE
     Dosage: 50 MG, QD
     Route: 048
     Dates: end: 2020

REACTIONS (7)
  - Amnesia [Unknown]
  - Adverse event [Unknown]
  - Memory impairment [Unknown]
  - Product dose omission issue [Recovered/Resolved]
  - Headache [Unknown]
  - Paraesthesia [Unknown]
  - Pain [Unknown]
